FAERS Safety Report 7957003-X (Version None)
Quarter: 2011Q4

REPORT INFORMATION
  Report Type: 
  Country: None (occurrence: None)
  Receive Date: 20111205
  Receipt Date: 20111205
  Transmission Date: 20120403
  Serious: Yes (Hospitalization, Other)
  Sender: FDA-Public Use
  Company Number: None

PATIENT
  Age: 41 Year
  Sex: Male
  Weight: 137 kg

DRUGS (12)
  1. FERROUS SULFATE TAB [Concomitant]
     Route: 048
  2. THIAMINE HCL [Concomitant]
  3. FOLIC ACID [Concomitant]
     Route: 042
  4. PRIVIGEN [Concomitant]
     Route: 042
  5. KETOROLAC TROMETHAMINE [Concomitant]
  6. OMEPRAZOLE [Concomitant]
     Route: 048
  7. KETOROLAC TROMETHAMINE [Concomitant]
     Route: 042
  8. VANCOMYCIN [Suspect]
     Indication: SEPSIS
     Dosage: 1.5 GRAMS
     Route: 042
     Dates: start: 20110830, end: 20110831
  9. ENOXAPARIN [Concomitant]
     Route: 058
  10. LACTOBACILLUS [Concomitant]
  11. VANCOMYCIN [Concomitant]
     Dosage: 1.5 GRAMS
     Route: 042
     Dates: start: 20110902, end: 20110904
  12. FAMOTIDINE [Concomitant]
     Route: 042

REACTIONS (5)
  - RENAL FAILURE ACUTE [None]
  - CLOSTRIDIUM TEST POSITIVE [None]
  - CANDIDA TEST POSITIVE [None]
  - ENTEROCOCCUS TEST POSITIVE [None]
  - MENTAL STATUS CHANGES [None]
